FAERS Safety Report 20105329 (Version 2)
Quarter: 2021Q4

REPORT INFORMATION
  Report Type: Report from Study
  Country: JP (occurrence: JP)
  Receive Date: 20211124
  Receipt Date: 20211206
  Transmission Date: 20220304
  Serious: Yes (Hospitalization, Other)
  Sender: FDA-Public Use
  Company Number: JP-ONO-2021JP029240

PATIENT
  Age: 30 Year
  Sex: Male
  Weight: 46 kg

DRUGS (4)
  1. NIVOLUMAB [Suspect]
     Active Substance: NIVOLUMAB
     Indication: Malignant neoplasm of unknown primary site
     Dosage: 240 MILLIGRAM
     Route: 041
     Dates: start: 20211109
  2. URSODIOL [Concomitant]
     Active Substance: URSODIOL
     Indication: Hepatic function abnormal
     Dosage: 100 MILLIGRAM, Q8H
     Route: 048
     Dates: start: 20211026
  3. ELNEOPA NF NO.1 [Concomitant]
     Indication: Malignant neoplasm of unknown primary site
     Dosage: 2000 MILLILITER, CONTINUOUS INJECTION
     Route: 042
     Dates: start: 20211102
  4. CALONAL [Concomitant]
     Active Substance: ACETAMINOPHEN
     Indication: Malignant neoplasm of unknown primary site
     Dosage: 250 MG, Q12H
     Route: 048
     Dates: start: 20211104

REACTIONS (2)
  - Hepatic function abnormal [Recovering/Resolving]
  - Intestinal obstruction [Recovered/Resolved]

NARRATIVE: CASE EVENT DATE: 20211116
